FAERS Safety Report 21675954 (Version 1)
Quarter: 2022Q4

REPORT INFORMATION
  Report Type: Spontaneous
  Country: US (occurrence: None)
  Receive Date: 20221202
  Receipt Date: 20221202
  Transmission Date: 20230112
  Serious: Yes (Hospitalization, Other)
  Sender: FDA-Public Use
  Company Number: 2022A392128

PATIENT
  Age: 52 Year
  Sex: Male

DRUGS (2)
  1. ROSUVASTATIN [Interacting]
     Active Substance: ROSUVASTATIN
     Indication: Hypercholesterolaemia
     Dosage: 40.0MG UNKNOWN
     Route: 048
  2. HERBALS [Interacting]
     Active Substance: HERBALS
     Route: 065

REACTIONS (3)
  - Compartment syndrome [Unknown]
  - Rhabdomyolysis [Unknown]
  - Drug interaction [Unknown]
